FAERS Safety Report 14119972 (Version 1)
Quarter: 2017Q4

REPORT INFORMATION
  Report Type: Not Available
  Country: US (occurrence: US)
  Receive Date: 20171024
  Receipt Date: 20171024
  Transmission Date: 20180321
  Serious: No
  Sender: FDA-Public Use
  Company Number: US-NEUROCRINE BIOSCIENCES INC.-2017NBI01000

PATIENT
  Age: 58 Year
  Sex: Male

DRUGS (13)
  1. CLONAZEPAM. [Concomitant]
     Active Substance: CLONAZEPAM
  2. COGENTIN [Concomitant]
     Active Substance: BENZTROPINE MESYLATE
  3. RAPAMUNE [Concomitant]
     Active Substance: SIROLIMUS
  4. INGREZZA [Suspect]
     Active Substance: VALBENAZINE
     Indication: TARDIVE DYSKINESIA
     Route: 048
     Dates: start: 20170815, end: 2017
  5. NEXIUM [Concomitant]
     Active Substance: ESOMEPRAZOLE MAGNESIUM
  6. ZITHROMAX [Concomitant]
     Active Substance: AZITHROMYCIN DIHYDRATE
  7. AMITRIPTYLINE [Concomitant]
     Active Substance: AMITRIPTYLINE
  8. IMURAN [Concomitant]
     Active Substance: AZATHIOPRINE
  9. METOPROLOL. [Concomitant]
     Active Substance: METOPROLOL
  10. MULTIVITAMIN [Concomitant]
     Active Substance: VITAMINS
  11. LAMOTRIGINE. [Concomitant]
     Active Substance: LAMOTRIGINE
  12. ATORVASTATIN [Concomitant]
     Active Substance: ATORVASTATIN
  13. PREDNISONE. [Concomitant]
     Active Substance: PREDNISONE

REACTIONS (3)
  - Fall [Unknown]
  - Anxiety [Unknown]
  - Confusional state [Unknown]

NARRATIVE: CASE EVENT DATE: 20170901
